FAERS Safety Report 8837831 (Version 4)
Quarter: 2012Q4

REPORT INFORMATION
  Report Type: 
  Country: JP (occurrence: JP)
  Receive Date: 20121012
  Receipt Date: 20121121
  Transmission Date: 20130627
  Serious: Yes (Other)
  Sender: FDA-Public Use
  Company Number: JP-SANOFI-AVENTIS-2012SA069319

PATIENT
  Age: 54 Year
  Sex: Female

DRUGS (4)
  1. ALLEGRA [Suspect]
     Indication: URTICARIA
     Route: 048
     Dates: start: 20120613, end: 20120910
  2. ALLEGRA [Suspect]
     Indication: URTICARIA
     Route: 048
     Dates: start: 20110914, end: 20110920
  3. ALLEGRA [Suspect]
     Indication: URTICARIA
     Route: 048
     Dates: start: 20110921, end: 20120612
  4. ALLEGRA [Suspect]
     Indication: URTICARIA
     Route: 048
     Dates: start: 20120910, end: 20120910

REACTIONS (4)
  - Leukopenia [Recovered/Resolved]
  - Malaise [Recovered/Resolved]
  - Headache [Recovered/Resolved]
  - Somnolence [Recovering/Resolving]
